FAERS Safety Report 9879510 (Version 3)
Quarter: 2014Q2

REPORT INFORMATION
  Report Type: Spontaneous
  Country: US (occurrence: US)
  Receive Date: 20140206
  Receipt Date: 20140403
  Transmission Date: 20141212
  Serious: Yes (Other)
  Sender: FDA-Public Use
  Company Number: US-PFIZER INC-2014034252

PATIENT
  Sex: Female

DRUGS (2)
  1. LYRICA [Suspect]
     Dosage: 75 MG, 3X/DAY
  2. LYRICA [Suspect]
     Dosage: 75 MG, 4X/DAY (4 CAPSULES- 1 EVERY SIX HOURS)

REACTIONS (4)
  - Fractured coccyx [Unknown]
  - Sciatica [Unknown]
  - Intentional product misuse [Unknown]
  - Feeling abnormal [Unknown]
